FAERS Safety Report 11981058 (Version 1)
Quarter: 2016Q1

REPORT INFORMATION
  Report Type: Spontaneous
  Country: TR (occurrence: TR)
  Receive Date: 20160129
  Receipt Date: 20160129
  Transmission Date: 20160526
  Serious: Yes (Other)
  Sender: FDA-Public Use
  Company Number: ALCN2016TR000811

PATIENT
  Age: 46 Year
  Sex: Male

DRUGS (1)
  1. TROPICAMIDE. [Suspect]
     Active Substance: TROPICAMIDE
     Indication: PRODUCT USED FOR UNKNOWN INDICATION
     Dosage: UNK
     Route: 065

REACTIONS (11)
  - Mydriasis [Unknown]
  - Nausea [Unknown]
  - Tachycardia [Unknown]
  - Hyperthermia [Unknown]
  - Tremor [Unknown]
  - Headache [Unknown]
  - Nystagmus [Unknown]
  - Agitation [Unknown]
  - Drug abuse [Unknown]
  - Vomiting [Unknown]
  - Eye irritation [Unknown]
